FAERS Safety Report 10919159 (Version 1)
Quarter: 2015Q1

REPORT INFORMATION
  Report Type: Other
  Country: DE (occurrence: DE)
  Receive Date: 20150316
  Receipt Date: 20150316
  Transmission Date: 20150721
  Serious: Yes (Hospitalization)
  Sender: FDA-Public Use
  Company Number: DE-MYLANLABS-2015M1007233

PATIENT

DRUGS (6)
  1. MARCUMAR [Interacting]
     Active Substance: PHENPROCOUMON
     Dosage: UNK
  2. CARVEDILOL BETA 6,25 MG TABLETTEN [Interacting]
     Active Substance: CARVEDILOL
     Dosage: UNK
  3. RANEXA [Interacting]
     Active Substance: RANOLAZINE
     Dosage: 375 MG, UNK
  4. SIMVASTATIN. [Suspect]
     Active Substance: SIMVASTATIN
     Dosage: 40 MG, UNK
  5. TORASEMID [Interacting]
     Active Substance: TORSEMIDE
     Dosage: UNK
  6. HAWTHORN LEAVES QA [Interacting]
     Active Substance: HERBALS
     Dosage: UNK
     Route: 048

REACTIONS (2)
  - Polyneuropathy [Unknown]
  - Drug interaction [Unknown]

NARRATIVE: CASE EVENT DATE: 20150129
